FAERS Safety Report 26158167 (Version 1)
Quarter: 2025Q4

REPORT INFORMATION
  Report Type: Spontaneous
  Country: US (occurrence: None)
  Receive Date: 20251215
  Receipt Date: 20251215
  Transmission Date: 20260117
  Serious: Yes (Other)
  Sender: FDA-CTU
  Company Number: None

PATIENT
  Age: 24 Year
  Sex: Female
  Weight: 51.75 kg

DRUGS (9)
  1. SERTRALINE [Suspect]
     Active Substance: SERTRALINE HYDROCHLORIDE
     Indication: Depression
     Dosage: OTHER QUANTITY : 0.5 TABLET(S);
     Route: 048
     Dates: start: 20211010, end: 20230801
  2. turmeric (inflammation) [Concomitant]
  3. magnesium (sleep and menstruation support) [Concomitant]
  4. vitamin D (to stave off seasonal affective disorder) [Concomitant]
  5. fish oil (brain health) [Concomitant]
  6. vitamin C (immunity) [Concomitant]
  7. turkey tail mushroom powder (immunity) [Concomitant]
  8. probiotics (gut health / bloating) [Concomitant]
  9. caffeine (coffee, tea, for energy) [Concomitant]

REACTIONS (5)
  - Sexual dysfunction [None]
  - Apathy [None]
  - Asocial behaviour [None]
  - Personal relationship issue [None]
  - Therapy cessation [None]

NARRATIVE: CASE EVENT DATE: 20230801
